FAERS Safety Report 6361092-6 (Version None)
Quarter: 2009Q3

REPORT INFORMATION
  Report Type: 
  Country: None (occurrence: None)
  Receive Date: 20090916
  Receipt Date: 20090916
  Transmission Date: 20100115
  Serious: Yes (Other)
  Sender: FDA-Public Use
  Company Number: None

PATIENT
  Sex: Male
  Weight: 112.4921 kg

DRUGS (1)
  1. LOVAZA [Suspect]
     Dosage: 2900MG TWICE DAILY
     Dates: start: 20090729, end: 20090818

REACTIONS (4)
  - ABDOMINAL DISCOMFORT [None]
  - ERUCTATION [None]
  - GASTRIC DISORDER [None]
  - INFLUENZA LIKE ILLNESS [None]
